FAERS Safety Report 25740134 (Version 1)
Quarter: 2025Q3

REPORT INFORMATION
  Report Type: Spontaneous
  Country: CH (occurrence: CH)
  Receive Date: 20250829
  Receipt Date: 20250829
  Transmission Date: 20251021
  Serious: Yes (Congenital Anomaly, Other)
  Sender: SANDOZ
  Company Number: None

PATIENT
  Sex: Female
  Weight: 4.9 kg

DRUGS (9)
  1. AMPHO-MORONAL [Suspect]
     Active Substance: AMPHOTERICIN B
     Indication: Fungal infection
     Route: 064
     Dates: start: 20210511
  2. FLUCONAZOLE [Suspect]
     Active Substance: FLUCONAZOLE
     Indication: Fungal infection
     Route: 064
  3. FLAGYL [Suspect]
     Active Substance: METRONIDAZOLE\METRONIDAZOLE HYDROCHLORIDE
     Indication: Fungal infection
     Route: 064
  4. DEQUALINIUM CHLORIDE [Suspect]
     Active Substance: DEQUALINIUM CHLORIDE
     Indication: Fungal infection
     Route: 064
  5. CLOTRIMAZOLE [Suspect]
     Active Substance: CLOTRIMAZOLE
     Indication: Fungal infection
     Route: 064
  6. ECONAZOLE NITRATE [Suspect]
     Active Substance: ECONAZOLE NITRATE
     Indication: Fungal infection
     Route: 064
  7. CLOTRIMAZOLE [Suspect]
     Active Substance: CLOTRIMAZOLE
     Indication: Fungal infection
     Route: 062
  8. HERBALS\HOPS\VALERIAN [Suspect]
     Active Substance: HERBALS\HOPS\VALERIAN
     Indication: Fungal infection
     Route: 064
  9. ZOLPIDEM TARTRATE [Suspect]
     Active Substance: ZOLPIDEM TARTRATE
     Indication: Fungal infection
     Route: 064

REACTIONS (4)
  - Congenital ectopic bladder [Recovered/Resolved]
  - Laryngomalacia [Recovered/Resolved]
  - Foetal macrosomia [Recovered/Resolved]
  - Exposure during pregnancy [Recovered/Resolved]
